FAERS Safety Report 5133572-2 (Version None)
Quarter: 2006Q4

REPORT INFORMATION
  Report Type: 
  Country: None (occurrence: None)
  Receive Date: 20061024
  Receipt Date: 20030911
  Transmission Date: 20070319
  Serious: Yes (Life-Threatening, Hospitalization)
  Sender: FDA-Public Use
  Company Number: PL-ROCHE-346719

PATIENT
  Age: 57 Year
  Sex: Male
  Weight: 67 kg

DRUGS (33)
  1. PEG-INTERFERON ALFA 2A (RO 25-8310) [Suspect]
     Route: 058
     Dates: start: 20030128, end: 20030908
  2. RIBAVIRIN [Suspect]
     Dosage: TWO TABLETS IN THE MORNING AND THREE TABLETS IN THE EVENING.
     Route: 048
     Dates: start: 20030128, end: 20030909
  3. KETOKONAZOL [Concomitant]
     Dates: start: 20030923, end: 20031102
  4. BUDESONIDE [Concomitant]
     Dosage: DRUG NAME REPORTED AS BUDESONIT.
  5. CREON [Concomitant]
  6. EUPHYLIN [Concomitant]
  7. POLOPIRYNA [Concomitant]
     Dosage: DRUG NAME REPORTED AS POLOPYRINA S.
  8. ASCORBIC ACID [Concomitant]
  9. UNSPECIFIED MEDICATION [Concomitant]
     Dosage: DRUG NAME REPORTED AS BIOTRAXON.
  10. CIPROFLOXACIN HCL [Concomitant]
     Dosage: AT THE TIME OF DISCHARGE 500 MG TWICE DAILY EVERY 12 HOURS.
  11. PIPERACILLIN AND TAZOBACTAM [Concomitant]
  12. REMESTYP [Concomitant]
  13. NATRIUM BICARBONICUM [Concomitant]
  14. CYCLONAMINE [Concomitant]
     Dosage: DRUG NAME REPORTED AS CYCLOAMIUM.
  15. VIT K [Concomitant]
  16. SODIUM CHLORIDE [Concomitant]
  17. FUROSEMIDE [Concomitant]
     Dosage: AT THE TIME OF DISCHARGE EVERY OTHER DAY.
  18. METOCLOPRAMIDE [Concomitant]
  19. TANNIN ALBUMINATE [Concomitant]
     Dosage: DRUG NAME REPORTED AS TANNINUM ALBUMINATUM.
  20. KALIPOZ [Concomitant]
     Dosage: AT THE TIME OF DISCHARGE ONE TABLET TWICE DAILY.
  21. UNSPECIFIED DRUG [Concomitant]
     Dosage: DRUG NAME REPORTED AS HISTODIL.
  22. PYRALGIN [Concomitant]
     Dosage: DRUG NAME REPORTED AS PYRALGINA.
  23. MONONIT [Concomitant]
     Dosage: AT THE TIME OF DISCHARGE 20 MG IN THE MORNING AND AT NOON.
  24. HYDROCORTISONE ACETATE [Concomitant]
  25. RELANIUM [Concomitant]
  26. SPASMALGAN [Concomitant]
  27. TRAMADOL HCL [Concomitant]
     Dosage: AT THE TIME OF DISCHARGE ONE TABLET THREE TIMES DAILY.
  28. RANIGAST [Concomitant]
     Dosage: AT THE TIME OF DISCHARGE ONE TABLET TWICE DAILY.
  29. LACTULOSE [Concomitant]
  30. FRAXIPARINE [Concomitant]
  31. LORAFEN [Concomitant]
  32. KETONAL [Concomitant]
  33. INTERFERON NOS [Concomitant]
     Dosage: 2 DOSE FORM.

REACTIONS (24)
  - ABDOMINAL PAIN [None]
  - ARTHRALGIA [None]
  - BODY TEMPERATURE INCREASED [None]
  - COUGH [None]
  - DEPRESSION [None]
  - DIARRHOEA [None]
  - EPIDIDYMITIS [None]
  - ERECTILE DYSFUNCTION [None]
  - ESCHERICHIA SEPSIS [None]
  - GASTROINTESTINAL HAEMORRHAGE [None]
  - GENERAL PHYSICAL HEALTH DETERIORATION [None]
  - INFLUENZA LIKE ILLNESS [None]
  - MYALGIA [None]
  - NEPHROLITHIASIS [None]
  - NEUTROPENIA [None]
  - PANCREATIC ENLARGEMENT [None]
  - RENAL FAILURE ACUTE [None]
  - RESPIRATORY TRACT INFECTION [None]
  - SUBACUTE ENDOCARDITIS [None]
  - TESTICULAR PAIN [None]
  - TESTICULAR SWELLING [None]
  - THROMBOCYTOPENIA [None]
  - URINARY TRACT INFECTION [None]
  - VOMITING [None]
